FAERS Safety Report 4355258-4 (Version None)
Quarter: 2004Q2

REPORT INFORMATION
  Report Type: 
  Country: None (occurrence: None)
  Receive Date: 20040504
  Receipt Date: 20040419
  Transmission Date: 20050107
  Serious: Yes (Death, Hospitalization)
  Sender: FDA-Public Use
  Company Number: WAES 0309USA02299

PATIENT
  Age: 63 Year
  Sex: Female

DRUGS (4)
  1. ZOCOR [Suspect]
     Indication: HYPERLIPIDAEMIA
     Dosage: 5 MG/DAILY
     Route: 048
     Dates: start: 19930208, end: 19991110
  2. ISOSORBIDE [Concomitant]
  3. NICARDIPINE HCL [Concomitant]
  4. PRAZOSIN HCL [Concomitant]

REACTIONS (1)
  - RECTAL CANCER [None]
